FAERS Safety Report 25408310 (Version 1)
Quarter: 2025Q2

REPORT INFORMATION
  Report Type: Spontaneous
  Country: US (occurrence: US)
  Receive Date: 20250606
  Receipt Date: 20250606
  Transmission Date: 20250716
  Serious: No
  Sender: SANOFI AVENTIS
  Company Number: US-SA-2025SA160862

PATIENT
  Sex: Male
  Weight: 85.72 kg

DRUGS (1)
  1. DUPIXENT [Suspect]
     Active Substance: DUPILUMAB
     Indication: Dermatitis atopic
     Dosage: 300MG; QOW
     Route: 058

REACTIONS (3)
  - Conjunctivitis [Unknown]
  - Ocular hyperaemia [Unknown]
  - Dry eye [Unknown]
